FAERS Safety Report 22078063 (Version 3)
Quarter: 2023Q2

REPORT INFORMATION
  Report Type: Spontaneous
  Country: JP (occurrence: JP)
  Receive Date: 20230309
  Receipt Date: 20230615
  Transmission Date: 20230722
  Serious: Yes (Hospitalization, Other)
  Sender: FDA-Public Use
  Company Number: JP-UCBSA-2023011893

PATIENT
  Age: 66 Year
  Sex: Female
  Weight: 89.9 kg

DRUGS (3)
  1. CIMZIA [Suspect]
     Active Substance: CERTOLIZUMAB PEGOL
     Indication: Pustular psoriasis
     Dosage: 400 MILLIGRAM
     Route: 058
     Dates: start: 20220425, end: 202212
  2. EZETIMIBE [Concomitant]
     Active Substance: EZETIMIBE
     Indication: Hyperlipidaemia
     Dosage: 10 MILLIGRAM
     Route: 048
     Dates: start: 20170807
  3. ZOLPIDEM TARTRATE [Concomitant]
     Active Substance: ZOLPIDEM TARTRATE
     Indication: Insomnia
     Dosage: 10 MILLIGRAM
     Route: 048
     Dates: start: 20130509

REACTIONS (2)
  - Breast cancer [Recovering/Resolving]
  - Mastectomy [Recovering/Resolving]

NARRATIVE: CASE EVENT DATE: 20221205
